FAERS Safety Report 4986428-X (Version None)
Quarter: 2006Q2

REPORT INFORMATION
  Report Type: 
  Country: None (occurrence: None)
  Receive Date: 20060428
  Receipt Date: 20050707
  Transmission Date: 20061013
  Serious: Yes (Hospitalization)
  Sender: FDA-Public Use
  Company Number: US-BRISTOL-MYERS SQUIBB COMPANY-13030150

PATIENT
  Age: 69 Year
  Sex: Female

DRUGS (8)
  1. CDDP [Suspect]
     Indication: NON-SMALL CELL LUNG CANCER
     Route: 041
     Dates: start: 20050602, end: 20050602
  2. TS-1 [Suspect]
     Indication: NON-SMALL CELL LUNG CANCER STAGE IV
     Route: 048
     Dates: start: 20050602, end: 20050607
  3. DECADRON [Concomitant]
     Indication: PROPHYLAXIS OF NAUSEA AND VOMITING
     Route: 042
     Dates: start: 20050525, end: 20050525
  4. ALOXI [Concomitant]
     Indication: PROPHYLAXIS OF NAUSEA AND VOMITING
     Route: 042
     Dates: start: 20050602, end: 20050602
  5. KYTRIL [Concomitant]
     Indication: PROPHYLAXIS OF NAUSEA AND VOMITING
     Route: 042
     Dates: start: 20050525, end: 20050525
  6. EMEND [Concomitant]
     Indication: NAUSEA
     Route: 048
     Dates: start: 20050602
  7. PROTONIX [Concomitant]
     Indication: DYSPEPSIA
     Dates: start: 20050602
  8. ATIVAN [Concomitant]
     Indication: DYSPEPSIA
     Dates: start: 20050602

REACTIONS (8)
  - DIARRHOEA [None]
  - FATIGUE [None]
  - HYPOVOLAEMIA [None]
  - HYPOXIA [None]
  - NAUSEA [None]
  - NEUTROPENIA [None]
  - RENAL FAILURE ACUTE [None]
  - VOMITING [None]
